FAERS Safety Report 16243626 (Version 1)
Quarter: 2019Q2

REPORT INFORMATION
  Report Type: Spontaneous
  Country: US (occurrence: US)
  Receive Date: 20190426
  Receipt Date: 20190426
  Transmission Date: 20190711
  Serious: No
  Sender: FDA-Public Use
  Company Number: US-JNJFOC-20190414682

PATIENT
  Sex: Male

DRUGS (1)
  1. TYLENOL EXTRA STRENGTH [Suspect]
     Active Substance: ACETAMINOPHEN
     Indication: PAIN MANAGEMENT
     Dosage: ONE PILL EVERY 8 HRS
     Route: 048

REACTIONS (4)
  - Hypersensitivity [Recovered/Resolved]
  - Burning sensation [Not Recovered/Not Resolved]
  - Incorrect dose administered [Unknown]
  - Paraesthesia [Not Recovered/Not Resolved]
